FAERS Safety Report 7969332-4 (Version None)
Quarter: 2011Q4

REPORT INFORMATION
  Report Type: 
  Country: None (occurrence: None)
  Receive Date: 20111209
  Receipt Date: 20111130
  Transmission Date: 20120403
  Serious: Yes (Other)
  Sender: FDA-Public Use
  Company Number: US-ASTRAZENECA-2011SE73128

PATIENT
  Age: 78 Year
  Sex: Male
  Weight: 56.7 kg

DRUGS (4)
  1. VITAMIN B-12 [Concomitant]
     Dosage: MONTH
  2. TAMSOLUSION [Concomitant]
     Indication: CYSTITIS
  3. SYMBICORT [Suspect]
     Indication: CHRONIC OBSTRUCTIVE PULMONARY DISEASE
     Dosage: 160/4.5 MCG,ONE PUFF,  EVERY DAY
     Route: 055
     Dates: start: 20090101
  4. SYMBICORT [Suspect]
     Indication: EMPHYSEMA
     Dosage: 160/4.5 MCG,ONE PUFF,  EVERY DAY
     Route: 055
     Dates: start: 20090101

REACTIONS (4)
  - CYSTITIS [None]
  - INAPPROPRIATE SCHEDULE OF DRUG ADMINISTRATION [None]
  - INCORRECT DOSE ADMINISTERED [None]
  - PROSTATIC MASS [None]
